FAERS Safety Report 22339453 (Version 1)
Quarter: 2023Q2

REPORT INFORMATION
  Report Type: Report from Study
  Country: BR (occurrence: BR)
  Receive Date: 20230518
  Receipt Date: 20230518
  Transmission Date: 20230722
  Serious: Yes (Other)
  Sender: FDA-Public Use
  Company Number: BR-JNJFOC-20230250683

PATIENT
  Age: 48 Year
  Sex: Female

DRUGS (4)
  1. SIMPONI [Suspect]
     Active Substance: GOLIMUMAB
     Indication: Rheumatoid arthritis
     Route: 058
     Dates: start: 20201227, end: 20230221
  2. SIMPONI [Suspect]
     Active Substance: GOLIMUMAB
     Route: 058
  3. SIMPONI [Suspect]
     Active Substance: GOLIMUMAB
     Route: 058
  4. SULFASALAZINE [Concomitant]
     Active Substance: SULFASALAZINE

REACTIONS (6)
  - Breast cancer [Not Recovered/Not Resolved]
  - Perineoplasty [Unknown]
  - Rheumatoid arthritis [Unknown]
  - Crohn^s disease [Unknown]
  - Hyperthyroidism [Unknown]
  - Hypertension [Unknown]

NARRATIVE: CASE EVENT DATE: 20210101
